FAERS Safety Report 15485026 (Version 1)
Quarter: 2018Q4

REPORT INFORMATION
  Report Type: Spontaneous
  Country: US (occurrence: US)
  Receive Date: 20181010
  Receipt Date: 20181010
  Transmission Date: 20190205
  Serious: No
  Sender: FDA-Public Use
  Company Number: US-ROCHE-2146643

PATIENT
  Age: 75 Year
  Sex: Female

DRUGS (3)
  1. ESBRIET [Suspect]
     Active Substance: PIRFENIDONE
     Indication: IDIOPATHIC PULMONARY FIBROSIS
     Dosage: 2 TABLET THREE TIMES DAILY
     Route: 048
     Dates: start: 201806
  2. ESBRIET [Suspect]
     Active Substance: PIRFENIDONE
     Dosage: 1 TABLET  THREE TIMES DAILY
     Route: 048
  3. DILTIAZEM. [Concomitant]
     Active Substance: DILTIAZEM
     Dosage: ONGOING: UNKNOWN
     Route: 065

REACTIONS (3)
  - Abdominal pain [Unknown]
  - Dizziness [Unknown]
  - Dyspepsia [Unknown]
